FAERS Safety Report 4899574-6 (Version None)
Quarter: 2006Q1

REPORT INFORMATION
  Report Type: 
  Country: None (occurrence: None)
  Receive Date: 20060130
  Receipt Date: 20060113
  Transmission Date: 20060701
  Serious: Yes (Hospitalization)
  Sender: FDA-Public Use
  Company Number: 2006-BP-00558RO

PATIENT
  Age: 37 Year
  Sex: Male
  Weight: 85 kg

DRUGS (3)
  1. LITHIUM CARBONATE [Suspect]
     Indication: BIPOLAR DISORDER
     Dosage: 900 MG/DAY, PO
     Route: 048
     Dates: start: 19990101, end: 20030801
  2. VALPROIC ACID [Concomitant]
     Indication: BIPOLAR DISORDER
     Dosage: 2 GM/DAY, PO
     Route: 048
     Dates: start: 19990101, end: 20030801
  3. RISPERIDONE [Suspect]
     Indication: BIPOLAR DISORDER
     Dosage: 2 TO 4 MG/DAY, PO
     Route: 048
     Dates: start: 20030301, end: 20030801

REACTIONS (6)
  - ANTI-GAD ANTIBODY POSITIVE [None]
  - ANTI-ISLET CELL ANTIBODY POSITIVE [None]
  - DIABETES MELLITUS [None]
  - DIABETIC KETOACIDOSIS [None]
  - METABOLIC ACIDOSIS [None]
  - WEIGHT INCREASED [None]
